FAERS Safety Report 12722087 (Version 2)
Quarter: 2016Q3

REPORT INFORMATION
  Report Type: Spontaneous
  Country: US (occurrence: US)
  Receive Date: 20160907
  Receipt Date: 20160929
  Transmission Date: 20161109
  Serious: Yes (Hospitalization, Other)
  Sender: FDA-Public Use
  Company Number: GXBR2008US00760

PATIENT
  Age: 54 Year
  Sex: Female
  Weight: 128.35 kg

DRUGS (3)
  1. ARISTOSPAN [Suspect]
     Active Substance: TRIAMCINOLONE HEXACETONIDE
     Indication: RHEUMATOID ARTHRITIS
     Dosage: UNK DF, ONCE/SINGLE
     Route: 014
     Dates: start: 19980320, end: 19980320
  2. PLAQUENIL [Concomitant]
     Active Substance: HYDROXYCHLOROQUINE SULFATE
     Indication: RHEUMATOID ARTHRITIS
     Dosage: UNK DF, UNK
     Route: 065
     Dates: start: 199704, end: 2003
  3. ARISTOSPAN [Suspect]
     Active Substance: TRIAMCINOLONE HEXACETONIDE
     Indication: JOINT SWELLING

REACTIONS (20)
  - Arthritis infective [Unknown]
  - Hypersensitivity [Unknown]
  - Skin infection [Not Recovered/Not Resolved]
  - Knee deformity [Not Recovered/Not Resolved]
  - Coma [Unknown]
  - Erythema [Unknown]
  - Dehydration [Unknown]
  - Erythema [Not Recovered/Not Resolved]
  - Escherichia bacteraemia [Unknown]
  - Pruritus [Unknown]
  - Oedema peripheral [Not Recovered/Not Resolved]
  - Proteus infection [Unknown]
  - Urinary tract infection [Unknown]
  - Arthralgia [Not Recovered/Not Resolved]
  - Condition aggravated [Not Recovered/Not Resolved]
  - Joint swelling [Not Recovered/Not Resolved]
  - Skin discolouration [Not Recovered/Not Resolved]
  - Swelling [Not Recovered/Not Resolved]
  - Klebsiella infection [Unknown]
  - Staphylococcal bacteraemia [Unknown]

NARRATIVE: CASE EVENT DATE: 19980321
